FAERS Safety Report 19976819 (Version 2)
Quarter: 2021Q4

REPORT INFORMATION
  Report Type: Report from Study
  Country: None (occurrence: DE)
  Receive Date: 20211021
  Receipt Date: 20211020
  Transmission Date: 20220303
  Serious: Yes (Death, Hospitalization)
  Sender: FDA-Public Use
  Company Number: DE-ABBVIE-21K-062-4114371-00

PATIENT
  Age: 71 Year
  Sex: Male

DRUGS (2)
  1. CARBIDOPA\LEVODOPA [Suspect]
     Active Substance: CARBIDOPA\LEVODOPA
     Indication: Parkinson^s disease
     Dosage: MD 6.0 ML, CRD 2.8 ML/H, ED 2.0 ML.?STRENGTH: 20 MG/ML 5 MG/ML.
     Route: 050
     Dates: start: 20200511, end: 202110
  2. CARBIDOPA\LEVODOPA [Suspect]
     Active Substance: CARBIDOPA\LEVODOPA
     Dosage: MD 6.0 ML, CRD 3.5 ML/H, ED 2.0 ML.?STRENGTH: 20 MG/ML 5 MG/ML.
     Route: 050
     Dates: start: 202110

REACTIONS (3)
  - Death [Fatal]
  - COVID-19 [Not Recovered/Not Resolved]
  - Mobility decreased [Not Recovered/Not Resolved]

NARRATIVE: CASE EVENT DATE: 20210901
